FAERS Safety Report 14441401 (Version 6)
Quarter: 2018Q2

REPORT INFORMATION
  Report Type: Report from Study
  Country: CA (occurrence: CA)
  Receive Date: 20180125
  Receipt Date: 20180420
  Transmission Date: 20180711
  Serious: Yes (Hospitalization, Other)
  Sender: FDA-Public Use
  Company Number: CA-JNJFOC-20180129664

PATIENT
  Age: 57 Year
  Sex: Male
  Weight: 58.9 kg

DRUGS (2)
  1. REMICADE [Suspect]
     Active Substance: INFLIXIMAB
     Indication: CROHN^S DISEASE
     Route: 042
     Dates: start: 20160122
  2. REMICADE [Suspect]
     Active Substance: INFLIXIMAB
     Indication: CROHN^S DISEASE
     Route: 042
     Dates: start: 20160212

REACTIONS (8)
  - Small intestinal obstruction [Not Recovered/Not Resolved]
  - Muscle spasticity [Unknown]
  - Intestinal stenosis [Recovering/Resolving]
  - Deep vein thrombosis [Unknown]
  - Vascular access complication [Unknown]
  - Abdominal pain [Unknown]
  - Metapneumovirus infection [Recovering/Resolving]
  - Diarrhoea [Unknown]

NARRATIVE: CASE EVENT DATE: 2018
